FAERS Safety Report 22944025 (Version 12)
Quarter: 2025Q1

REPORT INFORMATION
  Report Type: Spontaneous
  Country: US (occurrence: US)
  Receive Date: 20230914
  Receipt Date: 20250106
  Transmission Date: 20250408
  Serious: Yes (Other)
  Sender: PFIZER
  Company Number: US-PFIZER INC-PV202300144344

PATIENT
  Age: 81 Year
  Sex: Female
  Weight: 72.57 kg

DRUGS (5)
  1. IBRANCE [Suspect]
     Active Substance: PALBOCICLIB
     Indication: Breast cancer stage IV
     Dosage: TAKE 1 TABLET DAILY FOR 30 DAYS
     Route: 048
  2. IBRANCE [Suspect]
     Active Substance: PALBOCICLIB
     Indication: Precursor B-lymphoblastic lymphoma stage IV
     Route: 048
  3. IBRANCE [Suspect]
     Active Substance: PALBOCICLIB
     Indication: Breast cancer female
     Route: 048
  4. IBRANCE [Suspect]
     Active Substance: PALBOCICLIB
     Route: 048
  5. OZEMPIC [Suspect]
     Active Substance: SEMAGLUTIDE
     Indication: Diabetes mellitus
     Dosage: 5 MG, WEEKLY

REACTIONS (12)
  - Cytokine release syndrome [Unknown]
  - Weight decreased [Unknown]
  - Neoplasm progression [Unknown]
  - Brain fog [Unknown]
  - Product dose omission in error [Unknown]
  - Off label use [Unknown]
  - Amnesia [Unknown]
  - Feeding disorder [Unknown]
  - Taste disorder [Unknown]
  - Constipation [Not Recovered/Not Resolved]
  - Illness [Unknown]
  - Nausea [Unknown]

NARRATIVE: CASE EVENT DATE: 20240101
